FAERS Safety Report 11937358 (Version 4)
Quarter: 2016Q2

REPORT INFORMATION
  Report Type: Report from Study
  Country: KR (occurrence: KR)
  Receive Date: 20160121
  Receipt Date: 20160420
  Transmission Date: 20160815
  Serious: Yes (Hospitalization, Other)
  Sender: FDA-Public Use
  Company Number: KR-GILEAD-2016-0193389

PATIENT
  Age: 45 Year
  Sex: Male
  Weight: 56 kg

DRUGS (71)
  1. CIPROBAY                           /00697201/ [Concomitant]
     Active Substance: CIPROFLOXACIN
     Indication: PRODUCT USED FOR UNKNOWN INDICATION
     Dosage: 750 MG, UNK
     Route: 065
     Dates: start: 20150905, end: 20150905
  2. SMECTA                             /07327601/ [Concomitant]
     Dosage: UNK
     Route: 065
     Dates: start: 20150902, end: 20150904
  3. ALBUMIN [Concomitant]
     Active Substance: ALBUMIN HUMAN
     Dosage: 20 % 100 ML, UNK
     Route: 065
     Dates: start: 20150819, end: 20150819
  4. ALBUMIN [Concomitant]
     Active Substance: ALBUMIN HUMAN
     Dosage: 20 % 100 ML, UNK
     Route: 065
     Dates: start: 20150831, end: 20150831
  5. EXJADE [Concomitant]
     Active Substance: DEFERASIROX
     Indication: PRODUCT USED FOR UNKNOWN INDICATION
     Dosage: 125 MG, UNK
     Route: 065
     Dates: start: 20150621, end: 20150623
  6. MUCOSTEN [Concomitant]
     Indication: PRODUCT USED FOR UNKNOWN INDICATION
     Dosage: 300 MG, UNK
     Route: 065
     Dates: start: 20150620, end: 20150620
  7. SOLONDO [Concomitant]
     Active Substance: PREDNISOLONE
     Dosage: 5 MG, UNK
     Route: 065
     Dates: start: 20150811, end: 20150815
  8. TRENTAL 300 [Concomitant]
     Indication: PRODUCT USED FOR UNKNOWN INDICATION
     Dosage: 400 MG, UNK
     Route: 065
     Dates: start: 20150623, end: 20150813
  9. UCERAX [Concomitant]
     Indication: PRODUCT USED FOR UNKNOWN INDICATION
     Dosage: 10 MG, UNK
     Route: 065
     Dates: start: 20150630, end: 20150810
  10. BEECOM [Concomitant]
     Indication: PRODUCT USED FOR UNKNOWN INDICATION
     Dosage: UNK
     Route: 065
     Dates: start: 20150621
  11. LIVACT                             /07401301/ [Concomitant]
     Active Substance: AMINO ACIDS
     Indication: PRODUCT USED FOR UNKNOWN INDICATION
     Dosage: UNK
     Route: 065
     Dates: start: 20150629
  12. TRISONEKIT [Concomitant]
     Indication: PRODUCT USED FOR UNKNOWN INDICATION
     Dosage: UNK (2 G/100ML)
     Route: 065
     Dates: start: 20150819, end: 20150822
  13. MACPERAN [Concomitant]
     Active Substance: METOCLOPRAMIDE HYDROCHLORIDE
     Dosage: 10 MG, UNK
     Route: 065
     Dates: start: 20150820, end: 20150820
  14. SOLONDO [Concomitant]
     Active Substance: PREDNISOLONE
     Dosage: 5 MG, UNK
     Route: 065
     Dates: start: 20150703, end: 20150728
  15. SOLONDO [Concomitant]
     Active Substance: PREDNISOLONE
     Dosage: 5 MG, UNK
     Route: 065
     Dates: start: 20150729, end: 20150810
  16. LEGALON [Concomitant]
     Active Substance: MILK THISTLE
     Indication: PRODUCT USED FOR UNKNOWN INDICATION
     Dosage: 140 MG, UNK
     Route: 065
     Dates: start: 20150623, end: 20150624
  17. ALDACTONE [Concomitant]
     Active Substance: SPIRONOLACTONE
     Dosage: 26 MG, UNK
     Route: 065
     Dates: start: 20150703, end: 20150706
  18. TYGACIL [Concomitant]
     Active Substance: TIGECYCLINE
     Dosage: 50 MG, UNK
     Route: 065
     Dates: start: 20150825, end: 20150905
  19. MAXNOPHEN [Concomitant]
     Dosage: UNK
     Route: 065
     Dates: start: 20150903, end: 20150903
  20. PACETA [Concomitant]
     Dosage: UNK (1G/5ML)
     Route: 065
     Dates: start: 20150819, end: 20150819
  21. PACETA [Concomitant]
     Dosage: UNK (1G/5ML)
     Route: 065
     Dates: start: 20150829, end: 20150829
  22. PETHIDINE [Concomitant]
     Active Substance: MEPERIDINE
     Indication: PRODUCT USED FOR UNKNOWN INDICATION
     Dosage: 25 MG, UNK
     Route: 065
     Dates: start: 20150716, end: 20150717
  23. POLYBUTINE [Concomitant]
     Indication: PRODUCT USED FOR UNKNOWN INDICATION
     Dosage: 300 MG, UNK
     Route: 065
     Dates: start: 20150621, end: 20150624
  24. SOLONDO [Concomitant]
     Active Substance: PREDNISOLONE
     Dosage: 5 MG, UNK
     Route: 065
     Dates: start: 20150624, end: 20150702
  25. LIBERTY [Concomitant]
     Indication: PRODUCT USED FOR UNKNOWN INDICATION
     Dosage: 10 MG, UNK
     Route: 065
     Dates: start: 20150623, end: 20150623
  26. LANSTON [Concomitant]
     Active Substance: LANSOPRAZOLE
     Indication: PRODUCT USED FOR UNKNOWN INDICATION
     Dosage: 15 MG, UNK
     Route: 065
     Dates: start: 20150624
  27. HEPA-MERZ INFUSION [Concomitant]
     Dosage: UNK
     Route: 065
     Dates: start: 20150704, end: 20150905
  28. ALBUMIN [Concomitant]
     Active Substance: ALBUMIN HUMAN
     Indication: PRODUCT USED FOR UNKNOWN INDICATION
     Dosage: 20 % 100 ML, UNK
     Route: 065
     Dates: start: 20150701, end: 20150701
  29. NORMIX [Concomitant]
     Active Substance: RIFAXIMIN
     Indication: PRODUCT USED FOR UNKNOWN INDICATION
     Dosage: 200 MG, UNK
     Route: 065
     Dates: start: 20150821, end: 20150821
  30. GLIPTIDE [Concomitant]
     Indication: PRODUCT USED FOR UNKNOWN INDICATION
     Dosage: 200 MG, UNK
     Route: 065
     Dates: start: 20150624, end: 20150701
  31. NORVASC [Concomitant]
     Active Substance: AMLODIPINE BESYLATE
     Indication: PRODUCT USED FOR UNKNOWN INDICATION
     Dosage: 5 MG, UNK
     Route: 065
     Dates: start: 20150621, end: 20150702
  32. ATIVAN [Concomitant]
     Active Substance: LORAZEPAM
     Indication: PRODUCT USED FOR UNKNOWN INDICATION
     Dosage: 1 MG, UNK
     Route: 065
     Dates: start: 20150623
  33. ALDACTONE [Concomitant]
     Active Substance: SPIRONOLACTONE
     Indication: PRODUCT USED FOR UNKNOWN INDICATION
     Dosage: 25 MG, UNK
     Route: 065
     Dates: start: 20150914
  34. PACETA [Concomitant]
     Dosage: UNK (1G/5ML)
     Route: 065
     Dates: start: 20150623, end: 20150623
  35. PETHIDINE [Concomitant]
     Active Substance: MEPERIDINE
     Dosage: 25 MG, UNK
     Route: 065
     Dates: start: 20150823, end: 20150824
  36. DUPHALAC [Concomitant]
     Active Substance: LACTULOSE
     Indication: PRODUCT USED FOR UNKNOWN INDICATION
     Dosage: UNK (15 ML PACK)
     Route: 065
     Dates: start: 20150620, end: 20150620
  37. DUPHALAC [Concomitant]
     Active Substance: LACTULOSE
     Dosage: UNK
     Route: 065
     Dates: start: 20150819, end: 20150819
  38. POTASSIUM CHLORIDE. [Concomitant]
     Active Substance: POTASSIUM CHLORIDE
     Indication: PRODUCT USED FOR UNKNOWN INDICATION
     Dosage: UNK (20 ML)
     Route: 065
     Dates: start: 20150623, end: 20150625
  39. MUCOSTEN [Concomitant]
     Dosage: 300 MG, UNK
     Route: 065
     Dates: start: 20150819, end: 20150819
  40. CODAEWON FORTE [Concomitant]
     Indication: PRODUCT USED FOR UNKNOWN INDICATION
     Dosage: UNK (20 ML PACK)
     Route: 065
     Dates: start: 20150627, end: 20150701
  41. URSA [Concomitant]
     Indication: PRODUCT USED FOR UNKNOWN INDICATION
     Dosage: 200 MG, UNK
     Route: 065
     Dates: start: 20150822
  42. ROWACHOL                           /06253701/ [Concomitant]
     Indication: PRODUCT USED FOR UNKNOWN INDICATION
     Dosage: UNK
     Route: 065
     Dates: start: 20150822
  43. ALDACTONE [Concomitant]
     Active Substance: SPIRONOLACTONE
     Dosage: 25 MG, UNK
     Route: 065
     Dates: start: 20150626, end: 20150629
  44. DICETEL [Concomitant]
     Active Substance: PINAVERIUM BROMIDE
     Indication: PRODUCT USED FOR UNKNOWN INDICATION
     Dosage: 50 MG, UNK
     Route: 065
     Dates: start: 20150716, end: 20151014
  45. MAXNOPHEN [Concomitant]
     Indication: PRODUCT USED FOR UNKNOWN INDICATION
     Dosage: UNK
     Route: 065
     Dates: start: 20150822, end: 20150822
  46. ALBUMIN [Concomitant]
     Active Substance: ALBUMIN HUMAN
     Dosage: 20 % 100 ML, UNK
     Route: 065
     Dates: start: 20150716, end: 20150716
  47. PACETA [Concomitant]
     Dosage: UNK (1G/5ML)
     Route: 065
     Dates: start: 20150823, end: 20150824
  48. TRIZELE [Concomitant]
     Active Substance: METRONIDAZOLE
     Indication: PRODUCT USED FOR UNKNOWN INDICATION
     Dosage: 500 MG, UNK
     Route: 065
     Dates: start: 20150819, end: 20150822
  49. MACPERAN [Concomitant]
     Active Substance: METOCLOPRAMIDE HYDROCHLORIDE
     Dosage: 10 MG, UNK
     Route: 065
     Dates: start: 20150701, end: 20150702
  50. NICOTINAMIDE [Concomitant]
     Active Substance: NIACINAMIDE
     Indication: PRODUCT USED FOR UNKNOWN INDICATION
     Dosage: 1 MG, UNK
     Route: 065
     Dates: start: 20150612, end: 20150810
  51. RABIET [Concomitant]
     Indication: PRODUCT USED FOR UNKNOWN INDICATION
     Dosage: 10 MG, UNK
     Route: 065
     Dates: start: 20150627, end: 20150627
  52. ANTIBIO [Concomitant]
     Indication: PRODUCT USED FOR UNKNOWN INDICATION
     Dosage: 300 MG, UNK
     Route: 065
     Dates: start: 20150710
  53. ALDACTONE [Concomitant]
     Active Substance: SPIRONOLACTONE
     Dosage: 25, MG, UNK
     Route: 065
     Dates: start: 20150707, end: 20150905
  54. ALDACTONE [Concomitant]
     Active Substance: SPIRONOLACTONE
     Dosage: 25 MG, UNK
     Route: 065
     Dates: start: 20150701, end: 20150702
  55. TYGACIL [Concomitant]
     Active Substance: TIGECYCLINE
     Indication: PRODUCT USED FOR UNKNOWN INDICATION
     Dosage: 50 MG, UNK
     Route: 065
     Dates: start: 20150824, end: 20150824
  56. SMECTA                             /07327601/ [Concomitant]
     Indication: PRODUCT USED FOR UNKNOWN INDICATION
     Dosage: UNK UNK, UNK (20ML/PKG)
     Route: 065
     Dates: start: 20150901, end: 20150901
  57. TAZOLACTAM [Concomitant]
     Indication: PRODUCT USED FOR UNKNOWN INDICATION
     Dosage: 4.5 G, UNK
     Route: 065
     Dates: start: 20150822, end: 20150831
  58. ALBUMIN [Concomitant]
     Active Substance: ALBUMIN HUMAN
     Dosage: 20 % 100 ML, UNK
     Route: 065
     Dates: start: 20150725, end: 20150725
  59. ALBUMIN [Concomitant]
     Active Substance: ALBUMIN HUMAN
     Dosage: 20 % 100 ML, UNK
     Route: 065
     Dates: start: 20150728, end: 20150728
  60. ALBUMIN [Concomitant]
     Active Substance: ALBUMIN HUMAN
     Dosage: 20 % 100 ML, UNK
     Route: 065
     Dates: start: 20150730, end: 20150730
  61. PACETA [Concomitant]
     Indication: PRODUCT USED FOR UNKNOWN INDICATION
     Dosage: UNK (1G/5ML)
     Route: 065
     Dates: start: 20150620, end: 20150621
  62. CITOPCIN                           /00697202/ [Concomitant]
     Indication: PRODUCT USED FOR UNKNOWN INDICATION
     Dosage: UNK (400MG/200ML)
     Route: 065
     Dates: start: 20150620, end: 20150621
  63. MACPERAN [Concomitant]
     Active Substance: METOCLOPRAMIDE HYDROCHLORIDE
     Indication: PRODUCT USED FOR UNKNOWN INDICATION
     Dosage: 10 MG, UNK
     Route: 065
     Dates: start: 20150620, end: 20150621
  64. MACPERAN [Concomitant]
     Active Substance: METOCLOPRAMIDE HYDROCHLORIDE
     Dosage: 10 MG, UNK
     Route: 065
     Dates: start: 20150709, end: 20150806
  65. POTASSIUM CHLORIDE. [Concomitant]
     Active Substance: POTASSIUM CHLORIDE
     Dosage: UNK (20 ML)
     Route: 065
     Dates: start: 20150710, end: 20150710
  66. TENOFOVIR DISOPROXIL FUMARATE. [Suspect]
     Active Substance: TENOFOVIR DISOPROXIL FUMARATE
     Indication: PRODUCT USED FOR UNKNOWN INDICATION
     Dosage: 300 MG, UNK
     Route: 048
     Dates: start: 20140616
  67. QUETIAPIN [Concomitant]
     Active Substance: QUETIAPINE
     Indication: PRODUCT USED FOR UNKNOWN INDICATION
     Dosage: UNK
     Route: 065
     Dates: start: 20150623
  68. HEPA-MERZ INFUSION [Concomitant]
     Indication: PRODUCT USED FOR UNKNOWN INDICATION
     Dosage: UNK
     Route: 065
     Dates: start: 20150620, end: 20150703
  69. H2 BLOC [Concomitant]
     Indication: PRODUCT USED FOR UNKNOWN INDICATION
     Dosage: 200 MG, UNK
     Route: 065
     Dates: start: 20150621, end: 20150621
  70. SOLONDO [Concomitant]
     Active Substance: PREDNISOLONE
     Indication: PRODUCT USED FOR UNKNOWN INDICATION
     Dosage: 5 MG, UNK
     Route: 065
     Dates: start: 20150623, end: 20150623
  71. PERIDOL                            /00027401/ [Concomitant]
     Indication: PRODUCT USED FOR UNKNOWN INDICATION
     Dosage: 5 MG, UNK
     Route: 065
     Dates: start: 20150623, end: 20150623

REACTIONS (3)
  - Cirrhosis alcoholic [Recovered/Resolved with Sequelae]
  - Cholelithiasis [Recovered/Resolved with Sequelae]
  - Ascites [Recovered/Resolved with Sequelae]

NARRATIVE: CASE EVENT DATE: 20150620
